FAERS Safety Report 4286821-7 (Version None)
Quarter: 2004Q1

REPORT INFORMATION
  Report Type: 
  Country: None (occurrence: None)
  Receive Date: 20040206
  Receipt Date: 20040126
  Transmission Date: 20041129
  Serious: Yes (Hospitalization)
  Sender: FDA-Public Use
  Company Number: US-ROCHE-357188

PATIENT
  Age: 16 Year
  Sex: Female

DRUGS (2)
  1. ACCUTANE [Suspect]
     Dosage: STRENGTH REPORTED AS 40 MG AND 80 MG
     Route: 048
     Dates: start: 20010215, end: 20010815
  2. ACCUTANE [Suspect]
     Dosage: STRENGTH: 40 MG AND 80 MG
     Route: 048
     Dates: start: 19991111, end: 20000515

REACTIONS (3)
  - DEPRESSION [None]
  - MOOD SWINGS [None]
  - SUICIDE ATTEMPT [None]
